FAERS Safety Report 11786621 (Version 5)
Quarter: 2016Q1

REPORT INFORMATION
  Report Type: Report from Study
  Country: RU (occurrence: RU)
  Receive Date: 20151130
  Receipt Date: 20160307
  Transmission Date: 20160525
  Serious: Yes (Death, Life-Threatening, Hospitalization, Other)
  Sender: FDA-Public Use
  Company Number: RU-JNJFOC-20150919295

PATIENT
  Age: 54 Year
  Sex: Male
  Weight: 92 kg

DRUGS (21)
  1. IBRUTINIB [Suspect]
     Active Substance: IBRUTINIB
     Indication: CHRONIC LYMPHOCYTIC LEUKAEMIA
     Route: 048
     Dates: end: 20151101
  2. IBRUTINIB [Suspect]
     Active Substance: IBRUTINIB
     Indication: CHRONIC LYMPHOCYTIC LEUKAEMIA
     Dosage: DOSE REPORTED AS 4 CAPSULES DAILY
     Route: 048
     Dates: start: 20150917, end: 20150925
  3. IBRUTINIB [Suspect]
     Active Substance: IBRUTINIB
     Indication: CHRONIC LYMPHOCYTIC LEUKAEMIA
     Route: 048
     Dates: start: 20150624
  4. ALLOPURINOL. [Concomitant]
     Active Substance: ALLOPURINOL
     Dosage: 2 TABLETS
     Route: 048
     Dates: start: 20150916
  5. OMEPRAZOLE. [Concomitant]
     Active Substance: OMEPRAZOLE
     Dosage: 20, 1 TIME
     Route: 048
     Dates: start: 20150917, end: 20151121
  6. VEROSPIRON [Concomitant]
     Active Substance: SPIRONOLACTONE
     Dosage: 50, 1 TIME PER DAY
     Route: 048
     Dates: start: 20150919, end: 20151012
  7. HEPARIN [Concomitant]
     Active Substance: HEPARIN SODIUM
     Route: 042
     Dates: start: 20150915
  8. LASIX [Concomitant]
     Active Substance: FUROSEMIDE
  9. IBRUTINIB [Suspect]
     Active Substance: IBRUTINIB
     Indication: MANTLE CELL LYMPHOMA
     Route: 048
     Dates: start: 20151015
  10. ALLOPURINOL. [Concomitant]
     Active Substance: ALLOPURINOL
     Dosage: 2 TABLETS
     Route: 048
     Dates: start: 20150917, end: 20151121
  11. NORMAL SALINE [Concomitant]
     Active Substance: SODIUM CHLORIDE
     Route: 042
  12. IBRUTINIB [Suspect]
     Active Substance: IBRUTINIB
     Indication: MANTLE CELL LYMPHOMA
     Dosage: DOSE REPORTED AS 4 CAPSULES DAILY
     Route: 048
     Dates: start: 20150917, end: 20150925
  13. IBRUTINIB [Suspect]
     Active Substance: IBRUTINIB
     Indication: MANTLE CELL LYMPHOMA
     Route: 048
     Dates: end: 20151101
  14. IBRUTINIB [Suspect]
     Active Substance: IBRUTINIB
     Indication: CHRONIC LYMPHOCYTIC LEUKAEMIA
     Route: 048
     Dates: start: 20151015
  15. DEXAMETHASONE. [Concomitant]
     Active Substance: DEXAMETHASONE
     Indication: PROPHYLAXIS
     Route: 042
     Dates: start: 20150917, end: 20150921
  16. ALLOPURINOL. [Concomitant]
     Active Substance: ALLOPURINOL
     Dosage: 600, 1 TIME
     Route: 048
     Dates: start: 20150914
  17. VEROSPIRON [Concomitant]
     Active Substance: SPIRONOLACTONE
     Dosage: 50, 1 TIME PER DAY
     Route: 048
     Dates: start: 20150917
  18. DEXAMETHASONE. [Concomitant]
     Active Substance: DEXAMETHASONE
     Indication: PROPHYLAXIS
     Route: 042
     Dates: start: 20151016, end: 20151121
  19. IBRUTINIB [Suspect]
     Active Substance: IBRUTINIB
     Indication: MANTLE CELL LYMPHOMA
     Route: 048
     Dates: start: 20150624
  20. ALBUMIN [Concomitant]
     Active Substance: ALBUMIN (HUMAN)
     Dosage: 100 ML 10%
     Dates: start: 20151005, end: 20151026
  21. BISOPROLOL [Concomitant]
     Active Substance: BISOPROLOL
     Dates: start: 20151002, end: 20151110

REACTIONS (12)
  - Pneumonia [Fatal]
  - Lymphocyte count increased [Not Recovered/Not Resolved]
  - Pyrexia [Not Recovered/Not Resolved]
  - Thrombocytopenia [Not Recovered/Not Resolved]
  - Septic shock [Fatal]
  - Disease progression [Not Recovered/Not Resolved]
  - Leukocytosis [Not Recovered/Not Resolved]
  - Sepsis [Fatal]
  - Procalcitonin increased [Not Recovered/Not Resolved]
  - Anaemia [Not Recovered/Not Resolved]
  - Hepatic failure [Fatal]
  - Haemorrhagic disorder [Fatal]

NARRATIVE: CASE EVENT DATE: 20150918
